FAERS Safety Report 5523145-1 (Version None)
Quarter: 2007Q4

REPORT INFORMATION
  Report Type: 
  Country: None (occurrence: None)
  Receive Date: 20071119
  Receipt Date: 20071101
  Transmission Date: 20080405
  Serious: Yes (Hospitalization)
  Sender: FDA-Public Use
  Company Number: 2007S1011431

PATIENT
  Sex: Female

DRUGS (10)
  1. CLARITHROMYCIN (CLARITHROMYCIN) [Suspect]
     Dates: start: 20071001, end: 20071009
  2. VALPROATE SODIUM [Suspect]
     Indication: EPILEPSY
     Dosage: 400 MG; TWICE A DAY
  3. ATORVASTATIN CALCIUM [Concomitant]
  4. BISOPROLOL FUMARATE [Concomitant]
  5. DIAZEPAM [Concomitant]
  6. LAMICTAL [Concomitant]
  7. LEVOTHYROXINE SODIUM [Concomitant]
  8. NEXIUM [Concomitant]
  9. TEMAZEPAM [Concomitant]
  10. VALSARTAN [Concomitant]

REACTIONS (3)
  - CONVULSION [None]
  - DRUG INTERACTION [None]
  - TREMOR [None]
